FAERS Safety Report 5070571-3 (Version None)
Quarter: 2006Q3

REPORT INFORMATION
  Report Type: 
  Country: None (occurrence: None)
  Receive Date: 20060804
  Receipt Date: 20050616
  Transmission Date: 20061208
  Serious: No
  Sender: FDA-Public Use
  Company Number: US-GLAXOSMITHKLINE-A0563320A

PATIENT
  Age: 52 Year
  Sex: Female

DRUGS (8)
  1. NICORETTE [Suspect]
  2. NICORETTE (MINT) [Suspect]
  3. NICORETTE (MINT) [Suspect]
  4. NICODERM CQ [Suspect]
  5. NICODERM CQ [Suspect]
  6. NICODERM CQ [Suspect]
  7. SYNTHROID [Concomitant]
  8. LEVOXYL [Concomitant]

REACTIONS (10)
  - APPLICATION SITE PARAESTHESIA [None]
  - CHEST PAIN [None]
  - FATIGUE [None]
  - FEELING JITTERY [None]
  - IRRITABILITY [None]
  - MOOD ALTERED [None]
  - NICOTINE DEPENDENCE [None]
  - PAIN IN EXTREMITY [None]
  - TENSION [None]
  - WEIGHT LOSS POOR [None]
